FAERS Safety Report 5158492-9 (Version None)
Quarter: 2006Q4

REPORT INFORMATION
  Report Type: 
  Country: None (occurrence: None)
  Receive Date: 20061128
  Receipt Date: 20061013
  Transmission Date: 20070319
  Serious: Yes (Life-Threatening, Disabling)
  Sender: FDA-Public Use
  Company Number: PHHO2006FR17134

PATIENT
  Age: 21 Year
  Sex: Male
  Weight: 69 kg

DRUGS (2)
  1. IMATINIB MESYLATE [Suspect]
     Indication: ACUTE LYMPHOCYTIC LEUKAEMIA
     Dosage: 400 MG, BID
     Route: 048
     Dates: start: 20060927, end: 20061008
  2. IMATINIB MESYLATE [Suspect]
     Dosage: 600 MG, UNK
     Dates: start: 20051009, end: 20051010

REACTIONS (11)
  - ALANINE AMINOTRANSFERASE ABNORMAL [None]
  - APLASIA [None]
  - BLOOD BILIRUBIN ABNORMAL [None]
  - CANDIDA SEPSIS [None]
  - ENTEROCOLITIS [None]
  - HEPATOMEGALY [None]
  - HEPATOTOXICITY [None]
  - LEUKAEMIC INFILTRATION HEPATIC [None]
  - MUCOSAL INFLAMMATION [None]
  - RESPIRATORY FAILURE [None]
  - STOMATITIS [None]
